FAERS Safety Report 9948460 (Version 1)
Quarter: 2014Q1

REPORT INFORMATION
  Report Type: Spontaneous
  Country: US (occurrence: US)
  Receive Date: 20140303
  Receipt Date: 20140303
  Transmission Date: 20141002
  Serious: No
  Sender: FDA-Public Use
  Company Number: US-ABBVIE-13P-163-1059233-00

PATIENT
  Age: 53 Year
  Sex: Female

DRUGS (17)
  1. HUMIRA [Suspect]
     Indication: PSORIASIS
     Dates: start: 20130213
  2. HUMIRA [Suspect]
     Dates: start: 20130220
  3. SYNTHROID [Concomitant]
     Indication: HYPOTHYROIDISM
  4. OMEPRAZOLE [Concomitant]
     Indication: PRODUCT USED FOR UNKNOWN INDICATION
  5. RANITIDINE [Concomitant]
     Indication: ILL-DEFINED DISORDER
  6. FLUOXETINE [Concomitant]
     Indication: DEPRESSION
  7. ESTRADIOL [Concomitant]
     Indication: HORMONE REPLACEMENT THERAPY
  8. MONTELUKAST [Concomitant]
     Indication: PRODUCT USED FOR UNKNOWN INDICATION
  9. ADVAIR [Concomitant]
     Indication: ASTHMA
  10. SPIRIVA [Concomitant]
     Indication: ASTHMA
  11. PROPRANOLOL [Concomitant]
     Indication: HYPERTENSION
  12. ENALAPRIL AMELIORATE [Concomitant]
     Indication: HYPERTENSION
  13. CELEBREX [Concomitant]
     Indication: ARTHRALGIA
  14. GABAPENTIN [Concomitant]
     Indication: NEURALGIA
  15. AMBIEN [Concomitant]
     Indication: INSOMNIA
  16. SIMVASTATIN [Concomitant]
     Indication: BLOOD CHOLESTEROL INCREASED
  17. CYCLOBENZAPRINE [Concomitant]
     Indication: MUSCLE SPASMS

REACTIONS (4)
  - Incorrect product storage [Unknown]
  - Poor quality drug administered [Unknown]
  - Incorrect product storage [Unknown]
  - Poor quality drug administered [Unknown]
